FAERS Safety Report 10527056 (Version 2)
Quarter: 2014Q4

REPORT INFORMATION
  Report Type: Spontaneous
  Country: US (occurrence: None)
  Receive Date: 20141016
  Receipt Date: 20141028
  Transmission Date: 20150528
  Serious: Yes (Hospitalization)
  Sender: FDA-Public Use
  Company Number: 2014SCAL000188

PATIENT
  Age: 50 Year
  Sex: Male

DRUGS (3)
  1. LISINOPRIL (LISINOPRIL) [Concomitant]
     Active Substance: LISINOPRIL
  2. AMLODIPINE [Suspect]
     Active Substance: AMLODIPINE BESYLATE
     Indication: PRODUCT USED FOR UNKNOWN INDICATION
  3. HYDROCHLOROTHIAZIDE. [Suspect]
     Active Substance: HYDROCHLOROTHIAZIDE
     Indication: PRODUCT USED FOR UNKNOWN INDICATION

REACTIONS (13)
  - Depressed level of consciousness [None]
  - Hyperinsulinaemia [None]
  - Hypoxia [None]
  - Hypokalaemia [None]
  - Renal failure [None]
  - Suicide attempt [None]
  - Toxicity to various agents [None]
  - Shock [None]
  - Tachycardia [None]
  - Overdose [None]
  - Respiratory failure [None]
  - Hypophosphataemia [None]
  - Intentional overdose [None]
